FAERS Safety Report 21114691 (Version 1)
Quarter: 2022Q3

REPORT INFORMATION
  Report Type: Spontaneous
  Country: US (occurrence: US)
  Receive Date: 20220721
  Receipt Date: 20220721
  Transmission Date: 20221027
  Serious: No
  Sender: FDA-Public Use
  Company Number: US-MEDEXUS PHARMA, INC.-2022MED00060

PATIENT
  Age: 77 Year
  Sex: Female

DRUGS (5)
  1. RASUVO [Suspect]
     Active Substance: METHOTREXATE SODIUM
     Indication: Rheumatoid arthritis
     Dosage: 25 MG, IN THE LEFT THIGH, 1X/WEEK
     Route: 030
     Dates: start: 202005, end: 20220127
  2. PREDNISONE [Concomitant]
     Active Substance: PREDNISONE
     Dosage: UNK
  3. LEUCOVORIN [Concomitant]
     Active Substance: LEUCOVORIN
  4. VITAMINS [Concomitant]
     Active Substance: VITAMINS
  5. UNSPECIFIED INGREDIENT [Concomitant]
     Active Substance: UNSPECIFIED INGREDIENT

REACTIONS (4)
  - Injury associated with device [Recovered/Resolved]
  - Exposure via skin contact [Recovered/Resolved]
  - Incorrect route of product administration [Not Recovered/Not Resolved]
  - Device leakage [Recovered/Resolved]

NARRATIVE: CASE EVENT DATE: 20200501
